FAERS Safety Report 23920631 (Version 1)
Quarter: 2024Q2

REPORT INFORMATION
  Report Type: Spontaneous
  Country: US (occurrence: US)
  Receive Date: 20240530
  Receipt Date: 20240530
  Transmission Date: 20240716
  Serious: Yes (Other)
  Sender: FDA-Public Use
  Company Number: US-PFIZER INC-202400181101

PATIENT
  Age: 54 Year
  Sex: Female

DRUGS (1)
  1. IBRANCE [Suspect]
     Active Substance: PALBOCICLIB
     Dosage: 100MG PER DAY ORALLY. 3 WEEKS ON 1 WEEK OFF
     Route: 048

REACTIONS (3)
  - Trigger finger [Not Recovered/Not Resolved]
  - Arthritis [Not Recovered/Not Resolved]
  - Diarrhoea [Recovered/Resolved]
